FAERS Safety Report 5390935-8 (Version None)
Quarter: 2007Q3

REPORT INFORMATION
  Report Type: 
  Country: None (occurrence: None)
  Receive Date: 20070718
  Receipt Date: 20070717
  Transmission Date: 20080115
  Serious: Yes (Hospitalization)
  Sender: FDA-Public Use
  Company Number: US-ABBOTT-07P-163-0374802-00

PATIENT
  Age: 38 Year
  Sex: Male

DRUGS (2)
  1. VALPROIC ACID [Suspect]
     Indication: CONVULSION
     Dosage: NOT REPORTED
  2. MULTIPLE ANTIEPILEPTIC MEDICATIONS [Concomitant]
     Indication: CONVULSION
     Dosage: NOT REPORTED

REACTIONS (1)
  - PLEURAL EFFUSION [None]
